FAERS Safety Report 6176181-9 (Version None)
Quarter: 2009Q2

REPORT INFORMATION
  Report Type: 
  Country: None (occurrence: None)
  Receive Date: 20090501
  Receipt Date: 20090428
  Transmission Date: 20091009
  Serious: Yes (Other)
  Sender: FDA-Public Use
  Company Number: US-JNJFOC-20061006819

PATIENT
  Sex: Male
  Weight: 131.09 kg

DRUGS (4)
  1. RISPERDAL [Suspect]
     Indication: DRUG USE FOR UNKNOWN INDICATION
  2. RISPERDAL [Suspect]
     Indication: SCHIZOPHRENIA
  3. RISPERDAL [Suspect]
     Indication: PSYCHOTIC DISORDER
  4. GEODEN [Concomitant]

REACTIONS (2)
  - HYPERGLYCAEMIA [None]
  - TYPE 2 DIABETES MELLITUS [None]
